FAERS Safety Report 9301099 (Version 1)
Quarter: 2013Q2

REPORT INFORMATION
  Report Type: Spontaneous
  Country: US (occurrence: US)
  Receive Date: 20130521
  Receipt Date: 20130521
  Transmission Date: 20140414
  Serious: No
  Sender: FDA-Public Use
  Company Number: US-BRISTOL-MYERS SQUIBB COMPANY-16567828

PATIENT
  Age: 46 Year
  Sex: Male
  Weight: 117.91 kg

DRUGS (1)
  1. BARACLUDE [Suspect]
     Dosage: INTER-14DEC2010
     Dates: start: 20081211

REACTIONS (7)
  - Cholelithiasis [Unknown]
  - Chest pain [Unknown]
  - Hepatic pain [Unknown]
  - Presyncope [Unknown]
  - Dizziness [Unknown]
  - Burning sensation [Unknown]
  - Feeling hot [Unknown]
